FAERS Safety Report 5085784-4 (Version None)
Quarter: 2006Q3

REPORT INFORMATION
  Report Type: 
  Country: None (occurrence: None)
  Receive Date: 20060816
  Receipt Date: 20060523
  Transmission Date: 20061208
  Serious: Yes (Disabling)
  Sender: FDA-Public Use
  Company Number: 0600061US

PATIENT
  Age: 49 Year
  Sex: Female

DRUGS (1)
  1. LUMIGAN [Suspect]
     Indication: GLAUCOMA
     Dates: start: 20020101

REACTIONS (9)
  - CORNEAL DISORDER [None]
  - EYELID DISORDER [None]
  - FACIAL NERVE DISORDER [None]
  - FACIAL PARESIS [None]
  - HYPOACUSIS [None]
  - KERATITIS [None]
  - LAGOPHTHALMOS [None]
  - NEURILEMMOMA [None]
  - NEUROMA [None]
